FAERS Safety Report 7533102-1 (Version None)
Quarter: 2011Q2

REPORT INFORMATION
  Report Type: 
  Country: None (occurrence: None)
  Receive Date: 20110608
  Receipt Date: 20110524
  Transmission Date: 20111010
  Serious: No
  Sender: FDA-Public Use
  Company Number: US-B.I. PHARMACEUTICALS,INC./RIDGEFIELD-2011-BP-08523BP

PATIENT
  Sex: Female

DRUGS (15)
  1. SYNTHROID [Concomitant]
     Dosage: 50 MG
  2. FLUCINOMIDE [Concomitant]
     Route: 061
  3. VASOTEC [Concomitant]
     Dosage: 10 MG
  4. METOPROLOL [Concomitant]
     Dosage: 50 MG
  5. PREMARIN [Concomitant]
  6. PRADAXA [Suspect]
     Indication: ATRIAL FIBRILLATION
     Dosage: 300 MG
     Route: 048
     Dates: start: 20110101
  7. VITAMIN B6 [Concomitant]
     Dosage: 100 MG
  8. CALCIUM CARBONATE [Concomitant]
  9. BONIVA [Concomitant]
     Dosage: 150 MG
     Route: 048
  10. PRILOSEC [Concomitant]
     Dosage: 20 MG
  11. MAGNESIUM OXIDE [Concomitant]
     Dosage: 400 MG
  12. VITAMIN D [Concomitant]
     Dosage: 2000 U
  13. NYSTATIN [Concomitant]
  14. DIFLUCAN [Concomitant]
  15. VITAMIN B-12 [Concomitant]
     Dosage: 1000 MCG

REACTIONS (3)
  - CONJUNCTIVAL OEDEMA [None]
  - EYE OEDEMA [None]
  - EYE HAEMORRHAGE [None]
